FAERS Safety Report 19164870 (Version 1)
Quarter: 2021Q2

REPORT INFORMATION
  Report Type: Spontaneous
  Country: US (occurrence: US)
  Receive Date: 20210421
  Receipt Date: 20210421
  Transmission Date: 20210717
  Serious: No
  Sender: FDA-Public Use
  Company Number: US-PARATEK PHARMACEUTICALS, INC.-2021PTK00012

PATIENT
  Sex: Female

DRUGS (14)
  1. COLLAGEN POWDER [Concomitant]
  2. NUZYRA [Suspect]
     Active Substance: OMADACYCLINE
     Indication: MYCOBACTERIAL INFECTION
     Dosage: 150 MG, 1X/DAY
     Route: 048
  3. AMIKACIN. [Concomitant]
     Active Substance: AMIKACIN
     Dosage: 1200 MG
     Route: 042
  4. AMIKACIN. [Concomitant]
     Active Substance: AMIKACIN
     Dosage: 1000 MG
     Dates: end: 20210209
  5. VITAMIN D3 [Concomitant]
     Active Substance: CHOLECALCIFEROL
  6. WARFARIN [Concomitant]
     Active Substance: WARFARIN
  7. CALCIUM [Concomitant]
     Active Substance: CALCIUM
  8. ALIGN [Concomitant]
     Active Substance: BIFIDOBACTERIUM LONGUM SUBSP. INFANTIS
  9. SINEQUAN [Concomitant]
     Active Substance: DOXEPIN HYDROCHLORIDE
  10. ATORVASTATIN [Concomitant]
     Active Substance: ATORVASTATIN
  11. FISH OIL [Concomitant]
     Active Substance: FISH OIL
  12. CEFOXITIN [Concomitant]
     Active Substance: CEFOXITIN SODIUM
  13. AMIKACIN. [Concomitant]
     Active Substance: AMIKACIN
     Dosage: 1200 MG
     Dates: start: 20210210
  14. VITAMIN C [Concomitant]
     Active Substance: ASCORBIC ACID

REACTIONS (4)
  - Dysgeusia [Not Recovered/Not Resolved]
  - Salivary hypersecretion [Not Recovered/Not Resolved]
  - Nausea [Not Recovered/Not Resolved]
  - Off label use [Not Recovered/Not Resolved]
